FAERS Safety Report 7501099-6 (Version None)
Quarter: 2011Q2

REPORT INFORMATION
  Report Type: 
  Country: None (occurrence: None)
  Receive Date: 20110524
  Receipt Date: 20110519
  Transmission Date: 20111010
  Serious: Yes (Hospitalization)
  Sender: FDA-Public Use
  Company Number: CH-SANOFI-AVENTIS-2011SA031427

PATIENT
  Age: 89 Year
  Sex: Female

DRUGS (10)
  1. PLAVIX [Suspect]
     Indication: PERIPHERAL ARTERIAL OCCLUSIVE DISEASE
     Route: 048
  2. BISOPROLOL FUMARATE [Concomitant]
     Route: 048
     Dates: end: 20110404
  3. PRAVASTATIN [Concomitant]
     Route: 048
     Dates: end: 20110404
  4. PANTOPRAZOLE [Concomitant]
     Route: 048
     Dates: end: 20110404
  5. TOLVON [Concomitant]
     Route: 048
     Dates: end: 20110404
  6. LANTUS [Concomitant]
     Route: 058
  7. DOXIUM [Concomitant]
     Route: 048
     Dates: end: 20110404
  8. ZOLPIDEM [Concomitant]
     Route: 048
     Dates: end: 20110404
  9. PLAVIX [Suspect]
     Route: 048
  10. ATACAND [Concomitant]
     Route: 048
     Dates: end: 20110404

REACTIONS (2)
  - URINARY TRACT INFECTION [None]
  - HAEMATEMESIS [None]
